FAERS Safety Report 7151042-7 (Version None)
Quarter: 2010Q4

REPORT INFORMATION
  Report Type: 
  Country: None (occurrence: None)
  Receive Date: 20101210
  Receipt Date: 20100922
  Transmission Date: 20110411
  Serious: Yes (Hospitalization)
  Sender: FDA-Public Use
  Company Number: B0688175A

PATIENT
  Age: 76 Year
  Sex: Male

DRUGS (7)
  1. AZATHIOPRINE [Suspect]
     Dosage: 25MG TWICE PER DAY
     Route: 048
     Dates: start: 20100101, end: 20100607
  2. CLINDAMYCIN [Suspect]
     Indication: TOOTH INFECTION
     Dosage: 200MG THREE TIMES PER DAY
     Route: 048
     Dates: start: 20100524, end: 20100530
  3. PYRIDOSTIGMINE BROMIDE [Suspect]
     Route: 048
     Dates: start: 20100301, end: 20100612
  4. PREDNISOLONE [Suspect]
     Dosage: 5MG PER DAY
     Route: 048
     Dates: start: 20100301
  5. TAMSULOSIN [Concomitant]
     Dosage: 4MG PER DAY
     Route: 048
     Dates: start: 20040101
  6. OMEPRAZOLE [Concomitant]
     Dosage: 20MG PER DAY
     Route: 048
     Dates: start: 20090101
  7. FENTANYL CITRATE [Concomitant]
     Route: 062

REACTIONS (5)
  - ABDOMINAL PAIN UPPER [None]
  - DIARRHOEA [None]
  - DRUG INTERACTION [None]
  - HEPATIC ENZYME INCREASED [None]
  - NAUSEA [None]
